FAERS Safety Report 19400599 (Version 3)
Quarter: 2022Q2

REPORT INFORMATION
  Report Type: Other
  Country: US (occurrence: None)
  Receive Date: 20210610
  Receipt Date: 20220602
  Transmission Date: 20220721
  Serious: Yes (Other)
  Sender: FDA-Public Use
  Company Number: US-ROCHE-2846851

PATIENT
  Sex: Male

DRUGS (2)
  1. CELLCEPT [Suspect]
     Active Substance: MYCOPHENOLATE MOFETIL
     Indication: Autoimmune haemolytic anaemia
     Dosage: 1000MG BID
     Route: 048
  2. CELLCEPT [Suspect]
     Active Substance: MYCOPHENOLATE MOFETIL
     Dosage: 1 TAB DAY 1 AND 2 TABS DAY 2 AND ALTERNATE
     Route: 048

REACTIONS (3)
  - Mental impairment [Unknown]
  - Off label use [Unknown]
  - Incorrect dose administered [Unknown]
